FAERS Safety Report 4277562-0 (Version None)
Quarter: 2004Q1

REPORT INFORMATION
  Report Type: 
  Country: None (occurrence: None)
  Receive Date: 20040121
  Receipt Date: 20040121
  Transmission Date: 20041129
  Serious: No
  Sender: FDA-Public Use
  Company Number: None

PATIENT
  Age: 73 Year
  Sex: Male
  Weight: 89.3 kg

DRUGS (2)
  1. FENTANYL [Suspect]
     Indication: PAIN
     Dosage: 25MCG/HR, 1 Q 72 HR, TOPICAL
     Route: 061
  2. ALPRAZOLAM [Suspect]
     Dosage: 0.125 MGPO
     Route: 048
     Dates: start: 20031009, end: 20031016

REACTIONS (1)
  - HYPOTENSION [None]
